FAERS Safety Report 8306588-2 (Version None)
Quarter: 2012Q2

REPORT INFORMATION
  Report Type: 
  Country: None (occurrence: None)
  Receive Date: 20120420
  Receipt Date: 20120420
  Transmission Date: 20120825
  Serious: Yes (Other)
  Sender: FDA-Public Use
  Company Number: None

PATIENT
  Age: 36 Year
  Sex: Male
  Weight: 120 kg

DRUGS (8)
  1. SIMVASTATIN [Concomitant]
  2. DOXEPIN HCL [Concomitant]
  3. LISINOPRIL [Concomitant]
  4. HYDROCODONE BITARTRATE AND ACETAMINOPHEN [Concomitant]
  5. METFORMIN HCL [Concomitant]
  6. CHANTIX [Suspect]
     Indication: TOBACCO ABUSE
     Dosage: CHANTIX STARTER PACK PER PACKAGE PO
     Route: 048
     Dates: start: 20120308, end: 20120330
  7. METOPROLOL TARTRATE [Concomitant]
  8. ZOLPIDEM [Concomitant]

REACTIONS (5)
  - BLOOD ALCOHOL INCREASED [None]
  - AGGRESSION [None]
  - DEPRESSED MOOD [None]
  - STAB WOUND [None]
  - INTENTIONAL SELF-INJURY [None]
